FAERS Safety Report 14456865 (Version 2)
Quarter: 2018Q2

REPORT INFORMATION
  Report Type: Report from Study
  Country: RU (occurrence: RU)
  Receive Date: 20180130
  Receipt Date: 20180416
  Transmission Date: 20180711
  Serious: Yes (Other)
  Sender: FDA-Public Use
  Company Number: RU-TEVA-2018-RU-852386

PATIENT
  Age: 11 Year
  Sex: Male
  Weight: 72 kg

DRUGS (3)
  1. LIPEGFILGRASTIM [Suspect]
     Active Substance: LIPEGFILGRASTIM
     Indication: PROPHYLAXIS
     Dosage: LAST DOSE PRIOR TO SAE: 02-APR-2017
     Route: 058
     Dates: start: 20170120
  2. IPHOSPHAMIDE [Suspect]
     Active Substance: IFOSFAMIDE
     Indication: EWING^S SARCOMA
     Dosage: LAST DOSE PRIOR TO SAE ONSET: 26-DEC-2017
     Route: 042
     Dates: start: 20171222
  3. ETOPOSIDE. [Suspect]
     Active Substance: ETOPOSIDE
     Indication: EWING^S SARCOMA
     Dosage: LAST DOSE PRIOR TO SAE ONSET: 26-DEC-2017
     Route: 042
     Dates: start: 20171222

REACTIONS (1)
  - Lymphopenia [Unknown]

NARRATIVE: CASE EVENT DATE: 20171228
